FAERS Safety Report 5366730-2 (Version None)
Quarter: 2007Q2

REPORT INFORMATION
  Report Type: 
  Country: None (occurrence: None)
  Receive Date: 20070622
  Receipt Date: 20060712
  Transmission Date: 20071010
  Serious: No
  Sender: FDA-Public Use
  Company Number: US-ASTRAZENECA-2006UW14369

PATIENT
  Age: 6 Year
  Sex: Male
  Weight: 19.5 kg

DRUGS (6)
  1. RHINOCORT [Suspect]
     Indication: SEASONAL ALLERGY
     Route: 045
  2. PREVACID [Concomitant]
  3. MIRALAX [Concomitant]
  4. FLUORIDE [Concomitant]
  5. VITAMIN CAP [Concomitant]
  6. CALCIUM CHLORIDE [Concomitant]

REACTIONS (1)
  - HAEMATURIA [None]
